FAERS Safety Report 18465139 (Version 1)
Quarter: 2020Q4

REPORT INFORMATION
  Report Type: Spontaneous
  Country: IT (occurrence: IT)
  Receive Date: 20201104
  Receipt Date: 20201104
  Transmission Date: 20210114
  Serious: Yes (Hospitalization)
  Sender: FDA-Public Use
  Company Number: IT-ANIPHARMA-2020-IT-000206

PATIENT
  Age: 47 Year
  Sex: Male

DRUGS (2)
  1. PROPAFENONE HYDROCHLORIDE (NON-SPECIFC) [Suspect]
     Active Substance: PROPAFENONE HYDROCHLORIDE
     Indication: ATRIAL FIBRILLATION
     Dates: start: 201901
  2. BISOPROLOL [Concomitant]
     Active Substance: BISOPROLOL
     Dosage: 3.5 MG

REACTIONS (1)
  - Acute generalised exanthematous pustulosis [Recovered/Resolved]
